FAERS Safety Report 8482004-5 (Version None)
Quarter: 2012Q3

REPORT INFORMATION
  Report Type: 
  Country: None (occurrence: None)
  Receive Date: 20120702
  Receipt Date: 20120626
  Transmission Date: 20120928
  Serious: Yes (Hospitalization)
  Sender: FDA-Public Use
  Company Number: PHHY2012FR054972

PATIENT
  Sex: Male

DRUGS (6)
  1. METFORMIN HCL [Suspect]
     Indication: DIABETES MELLITUS
     Route: 048
  2. AMARYL [Suspect]
     Indication: DIABETES MELLITUS
     Dosage: 1 DF, BID
  3. TENORMIN [Suspect]
     Indication: MYOCARDIAL ISCHAEMIA
     Dosage: 1 DF, BID
  4. VALSARTAN  AND HYDROCHLOROTHIAZIDE [Suspect]
     Indication: HYPERTENSION
     Dosage: 1 DF (80 MG VALSART AND 12.5 MG HYDRO), UNK
     Route: 048
  5. PLAVIX [Suspect]
     Indication: MYOCARDIAL ISCHAEMIA
     Dosage: 75 MG, DAILY
     Route: 048
  6. FENOFIBRATE [Suspect]
     Indication: DYSLIPIDAEMIA
     Dosage: 1 DF, DAILY
     Route: 048

REACTIONS (10)
  - GENERAL PHYSICAL HEALTH DETERIORATION [None]
  - GLARE [None]
  - COLITIS ULCERATIVE [None]
  - PAIN [None]
  - BREATH SOUNDS ABNORMAL [None]
  - COLITIS [None]
  - FREQUENT BOWEL MOVEMENTS [None]
  - MIDDLE INSOMNIA [None]
  - GASTROINTESTINAL SOUNDS ABNORMAL [None]
  - DIARRHOEA HAEMORRHAGIC [None]
